FAERS Safety Report 5525679-2 (Version None)
Quarter: 2007Q4

REPORT INFORMATION
  Report Type: 
  Country: None (occurrence: None)
  Receive Date: 20071120
  Receipt Date: 20070425
  Transmission Date: 20080405
  Serious: Yes (Hospitalization)
  Sender: FDA-Public Use
  Company Number: 2007US002796

PATIENT
  Age: 6 Year
  Sex: Male

DRUGS (10)
  1. PROGRAF [Suspect]
     Indication: RENAL TRANSPLANT
     Dates: start: 20050913
  2. ZENAPAX [Suspect]
     Indication: RENAL TRANSPLANT
     Dosage: 15 MG, UID/QD, IV NOS : 15 MG, IV NOS : 15 MG, IV NOS : 15 MG, IV NOS : 15 MG IV NOS
     Route: 042
     Dates: start: 20050914, end: 20050914
  3. ZENAPAX [Suspect]
     Indication: RENAL TRANSPLANT
     Dosage: 15 MG, UID/QD, IV NOS : 15 MG, IV NOS : 15 MG, IV NOS : 15 MG, IV NOS : 15 MG IV NOS
     Route: 042
     Dates: start: 20050926, end: 20050926
  4. ZENAPAX [Suspect]
     Indication: RENAL TRANSPLANT
     Dosage: 15 MG, UID/QD, IV NOS : 15 MG, IV NOS : 15 MG, IV NOS : 15 MG, IV NOS : 15 MG IV NOS
     Route: 042
     Dates: start: 20051010, end: 20051010
  5. ZENAPAX [Suspect]
     Indication: RENAL TRANSPLANT
     Dosage: 15 MG, UID/QD, IV NOS : 15 MG, IV NOS : 15 MG, IV NOS : 15 MG, IV NOS : 15 MG IV NOS
     Route: 042
     Dates: start: 20051024, end: 20051024
  6. ZENAPAX [Suspect]
     Indication: RENAL TRANSPLANT
     Dosage: 15 MG, UID/QD, IV NOS : 15 MG, IV NOS : 15 MG, IV NOS : 15 MG, IV NOS : 15 MG IV NOS
     Route: 042
     Dates: start: 20051114, end: 20051114
  7. VALCYTE [Concomitant]
  8. PREVACID [Concomitant]
  9. NITROFURANTOIN [Concomitant]
  10. NASONEX [Concomitant]

REACTIONS (10)
  - BLOOD CULTURE POSITIVE [None]
  - CANDIDIASIS [None]
  - COMPLICATIONS OF TRANSPLANTED KIDNEY [None]
  - CULTURE URINE POSITIVE [None]
  - GASTROINTESTINAL NECROSIS [None]
  - HERNIA [None]
  - INTESTINAL STRANGULATION [None]
  - PNEUMOTHORAX [None]
  - POST PROCEDURAL INFECTION [None]
  - POSTRENAL FAILURE [None]
